FAERS Safety Report 13519437 (Version 2)
Quarter: 2017Q3

REPORT INFORMATION
  Report Type: Spontaneous
  Country: US (occurrence: US)
  Receive Date: 20170505
  Receipt Date: 20170731
  Transmission Date: 20171127
  Serious: No
  Sender: FDA-Public Use
  Company Number: US-ACTELION-A-NJ2017-153426

PATIENT
  Age: 43 Year
  Sex: Male

DRUGS (1)
  1. VALCHLOR [Suspect]
     Active Substance: MECHLORETHAMINE
     Indication: MYCOSIS FUNGOIDES
     Dosage: THIN FILM TO AFFECTED SKIN ^AS DIRECTED^
     Route: 061
     Dates: start: 20141119

REACTIONS (3)
  - Pruritus [Unknown]
  - Treatment noncompliance [Unknown]
  - Skin lesion [Unknown]
